FAERS Safety Report 8795297 (Version 2)
Quarter: 2013Q2

REPORT INFORMATION
  Report Type: Report from Study
  Country: JP (occurrence: JP)
  Receive Date: 20120917
  Receipt Date: 20130410
  Transmission Date: 20140414
  Serious: Yes (Other)
  Sender: FDA-Public Use
  Company Number: JP-VERTEX PHARMACEUTICAL INC.-AE-2012-011617

PATIENT
  Age: 62 Year
  Sex: Female

DRUGS (7)
  1. VX-950 (TELAPREVIR) [Suspect]
     Indication: CHRONIC HEPATITIS C
     Dosage: 2250 MG, QD
     Route: 048
     Dates: start: 20120604, end: 20120604
  2. VX-950 (TELAPREVIR) [Suspect]
     Dosage: 1500 MG, QD
     Route: 048
     Dates: start: 20120605, end: 20120605
  3. REBETOL [Suspect]
     Indication: CHRONIC HEPATITIS C
     Dosage: 600 MG, QD
     Route: 048
     Dates: start: 20120604, end: 20120611
  4. PEGINTRON [Suspect]
     Indication: CHRONIC HEPATITIS C
     Dosage: 1.5 ?G/KG, QW
     Route: 058
     Dates: start: 20120604, end: 20120604
  5. URSO [Concomitant]
     Dosage: 600 MG, QD
     Route: 048
     Dates: end: 20120609
  6. URSO [Concomitant]
     Dosage: 600 MG, QD
     Route: 048
     Dates: start: 20120620
  7. ISODINE GARGLE [Concomitant]
     Dosage: UNK, PRN
     Route: 049
     Dates: start: 20120607

REACTIONS (1)
  - Neutrophil count decreased [Recovered/Resolved]
